FAERS Safety Report 4766939-2 (Version None)
Quarter: 2005Q3

REPORT INFORMATION
  Report Type: 
  Country: None (occurrence: None)
  Receive Date: 20050913
  Receipt Date: 20040908
  Transmission Date: 20060218
  Serious: Yes (Hospitalization)
  Sender: FDA-Public Use
  Company Number: FR-BOEHRINGER INGELHEIM PHARMACEUTICALS, INC.-2004-FF-00529FF

PATIENT
  Sex: Male
  Weight: 53.5 kg

DRUGS (7)
  1. TIPRANAVIR + RITONAVIR CO-ADMIN [Suspect]
     Indication: HIV INFECTION
     Dosage: TPV/RTV 500/200 MG B.I.D.
     Route: 048
     Dates: start: 20040114
  2. FUZEON [Concomitant]
     Indication: HIV INFECTION
     Route: 058
     Dates: start: 20040114, end: 20040726
  3. EPIVIR [Concomitant]
     Indication: HIV INFECTION
     Route: 048
  4. ORACILLINE [Concomitant]
     Dosage: 3 MILLIONS IU DAILY
     Route: 048
  5. WELLVONE [Concomitant]
     Route: 048
  6. AZADOSE [Concomitant]
     Dosage: 1200 MG PER WEEK
     Route: 048
  7. FLUCONAZOLE [Concomitant]
     Route: 048

REACTIONS (4)
  - ASTHENIA [None]
  - COUGH [None]
  - PYREXIA [None]
  - RHINORRHOEA [None]
